FAERS Safety Report 9918175 (Version 2)
Quarter: 2014Q1

REPORT INFORMATION
  Report Type: Spontaneous
  Country: TR (occurrence: TR)
  Receive Date: 20140223
  Receipt Date: 20140306
  Transmission Date: 20141002
  Serious: Yes (Death, Hospitalization, Other)
  Sender: FDA-Public Use
  Company Number: TR-009507513-1402TUR008191

PATIENT
  Age: 64 Year
  Sex: Male

DRUGS (1)
  1. BCG LIVE [Suspect]
     Indication: BLADDER CANCER
     Dosage: UNK
     Route: 043

REACTIONS (6)
  - Sepsis [Fatal]
  - Pneumonia [Fatal]
  - Renal failure acute [Fatal]
  - Granulomatous liver disease [Fatal]
  - Pyrexia [Fatal]
  - Dialysis [Fatal]
